FAERS Safety Report 7544440-0 (Version None)
Quarter: 2011Q2

REPORT INFORMATION
  Report Type: 
  Country: None (occurrence: None)
  Receive Date: 20110613
  Receipt Date: 20090302
  Transmission Date: 20111010
  Serious: Yes (Death, Other)
  Sender: FDA-Public Use
  Company Number: PHHY2009CA01728

PATIENT
  Sex: Male

DRUGS (1)
  1. SANDOSTATIN LAR [Suspect]
     Indication: HEPATIC NEOPLASM MALIGNANT
     Dosage: 30 MG, EVERY FOUR WEEKS
     Route: 030
     Dates: start: 20081023, end: 20081228

REACTIONS (7)
  - THIRST DECREASED [None]
  - ABDOMINAL DISTENSION [None]
  - WEIGHT DECREASED [None]
  - HYPERSOMNIA [None]
  - DEATH [None]
  - DECREASED APPETITE [None]
  - OEDEMA PERIPHERAL [None]
